FAERS Safety Report 7448579 (Version 4)
Quarter: 2020Q3

REPORT INFORMATION
  Report Type: Report from Study
  Country: US (occurrence: US)
  Receive Date: 20100630
  Receipt Date: 20100805
  Transmission Date: 20201104
  Serious: Yes (Other)
  Sender: FDA-Public Use
  Company Number: US-JNJFOC-20100607690

PATIENT
  Age: 50 Year
  Sex: Female
  Weight: 63.2 kg

DRUGS (18)
  1. CISAPRIDE [Suspect]
     Active Substance: CISAPRIDE
     Indication: GASTROINTESTINAL MOTILITY DISORDER
     Route: 048
  2. NEURONTIN [Concomitant]
     Active Substance: GABAPENTIN
     Route: 065
  3. CLONAZEPAM. [Concomitant]
     Active Substance: CLONAZEPAM
     Indication: ANXIETY
     Route: 065
  4. CISAPRIDE [Suspect]
     Active Substance: CISAPRIDE
     Route: 048
  5. CELEXA [Concomitant]
     Active Substance: CITALOPRAM HYDROBROMIDE
     Indication: DEPRESSION
     Route: 065
  6. CISAPRIDE [Suspect]
     Active Substance: CISAPRIDE
     Indication: GASTROOESOPHAGEAL REFLUX DISEASE
     Route: 048
  7. DARVOCET?N 100 [Concomitant]
     Active Substance: ACETAMINOPHEN\PROPOXYPHENE NAPSYLATE
     Indication: ABDOMINAL PAIN
     Route: 065
  8. PRILOSEC [Concomitant]
     Active Substance: OMEPRAZOLE MAGNESIUM
     Indication: GASTROOESOPHAGEAL REFLUX DISEASE
     Route: 048
  9. CISAPRIDE [Suspect]
     Active Substance: CISAPRIDE
     Route: 048
  10. CISAPRIDE [Suspect]
     Active Substance: CISAPRIDE
     Route: 048
  11. CLONAZEPAM. [Concomitant]
     Active Substance: CLONAZEPAM
     Indication: NAUSEA
     Route: 065
  12. ESTRATEST [Concomitant]
     Active Substance: ESTROGENS, ESTERIFIED\METHYLTESTOSTERONE
     Indication: POSTMENOPAUSE
     Route: 065
  13. ROBINUL [Concomitant]
     Active Substance: GLYCOPYRROLATE
     Route: 065
  14. ROBINUL [Concomitant]
     Active Substance: GLYCOPYRROLATE
     Indication: NAUSEA
     Route: 048
  15. CISAPRIDE [Suspect]
     Active Substance: CISAPRIDE
     Route: 048
  16. DIVIGEL [Concomitant]
     Active Substance: ESTRADIOL
     Indication: HORMONE REPLACEMENT THERAPY
     Route: 065
  17. NEXIUM [Concomitant]
     Active Substance: ESOMEPRAZOLE MAGNESIUM
     Indication: GASTROOESOPHAGEAL REFLUX DISEASE
     Route: 065
  18. CIPRO [Concomitant]
     Active Substance: CIPROFLOXACIN HYDROCHLORIDE
     Indication: CYSTITIS
     Route: 065

REACTIONS (1)
  - Electrocardiogram QT prolonged [Recovered/Resolved]

NARRATIVE: CASE EVENT DATE: 20100608
